FAERS Safety Report 8065064-5 (Version None)
Quarter: 2012Q1

REPORT INFORMATION
  Report Type: 
  Country: None (occurrence: None)
  Receive Date: 20120124
  Receipt Date: 20120119
  Transmission Date: 20120608
  Serious: Yes (Other)
  Sender: FDA-Public Use
  Company Number: US-PFIZER INC-2012016097

PATIENT
  Age: 70 Year
  Sex: Female

DRUGS (3)
  1. AVASTIN [Concomitant]
     Dosage: UNK
  2. CAMPTOSAR [Suspect]
     Indication: RECTAL CANCER METASTATIC
     Dosage: UNK
     Route: 042
     Dates: end: 20111201
  3. ERBITUX [Concomitant]
     Dosage: UNK

REACTIONS (1)
  - DIARRHOEA [None]
